FAERS Safety Report 18228182 (Version 1)
Quarter: 2020Q3

REPORT INFORMATION
  Report Type: Report from Study
  Country: DE (occurrence: DE)
  Receive Date: 20200903
  Receipt Date: 20200903
  Transmission Date: 20201103
  Serious: Yes (Other)
  Sender: FDA-Public Use
  Company Number: DE-PFIZER INC-2020337436

PATIENT
  Sex: Male

DRUGS (9)
  1. VITAMIN B6 [Concomitant]
     Active Substance: PYRIDOXINE HYDROCHLORIDE
     Dosage: UNK
  2. ACYCLOVIR [ACICLOVIR] [Concomitant]
     Active Substance: ACYCLOVIR
     Dosage: UNK
  3. ZAVEDOS [Suspect]
     Active Substance: IDARUBICIN
     Indication: ACUTE MYELOID LEUKAEMIA RECURRENT
     Dosage: 12 MG/M2, DAILY (ONE?HOUR SHORT INFUSION, STARTED ON DAY 2 AND CONTINUED THROUGH DAY 4)
  4. FLUDARABINE [Suspect]
     Active Substance: FLUDARABINE PHOSPHATE
     Indication: ACUTE MYELOID LEUKAEMIA RECURRENT
     Dosage: 30 MG/M2, DAILY, 30?MINUTE SHORT INFUSION (SI) AND ALWAYS 4 HOURS BEFORE ARA?C FROM DAYS 1 TO 4
  5. CORTISONE [Concomitant]
     Active Substance: CORTISONE
     Dosage: UNK (EYE DROPS)
  6. COTRIMOXAZOLE [Concomitant]
     Active Substance: SULFAMETHOXAZOLE\TRIMETHOPRIM
     Indication: ANTIBIOTIC PROPHYLAXIS
     Dosage: UNK
  7. IMMUNOGLOBULINS NOS [Concomitant]
     Active Substance: IMMUNE GLOBULIN NOS
     Dosage: UNK
  8. CYTARABINE. [Suspect]
     Active Substance: CYTARABINE
     Indication: ACUTE MYELOID LEUKAEMIA RECURRENT
     Dosage: 2000 MG/M2, DAILY (FROM DAYS 1 TO 4 AS A 3?HOUR SHORT INFUSION)
  9. NEUPOGEN [Suspect]
     Active Substance: FILGRASTIM
     Indication: ACUTE MYELOID LEUKAEMIA RECURRENT
     Dosage: 400 UG/M2, DAILY, FROM DAY 0
     Route: 058

REACTIONS (2)
  - T-lymphocyte count decreased [Unknown]
  - Lymph node tuberculosis [Unknown]
